FAERS Safety Report 6677056-9 (Version None)
Quarter: 2010Q2

REPORT INFORMATION
  Report Type: 
  Country: None (occurrence: None)
  Receive Date: 20100412
  Receipt Date: 20100407
  Transmission Date: 20101027
  Serious: Yes (Other)
  Sender: FDA-Public Use
  Company Number: US-MEDIMMUNE-MEDI-0010699

PATIENT
  Sex: Male
  Weight: 1.815 kg

DRUGS (2)
  1. SYNAGIS [Suspect]
     Dates: end: 20100211
  2. ALBUTEROL [Concomitant]
     Dates: start: 20100110

REACTIONS (3)
  - CYANOSIS [None]
  - DYSPNOEA [None]
  - HYPERHIDROSIS [None]
